FAERS Safety Report 24567959 (Version 2)
Quarter: 2025Q3

REPORT INFORMATION
  Report Type: Spontaneous
  Country: EU (occurrence: EU)
  Receive Date: 20241031
  Receipt Date: 20250809
  Transmission Date: 20251021
  Serious: Yes (Death, Other)
  Sender: ALEXION PHARMACEUTICALS
  Company Number: EU-ASTRAZENECA-202409EEA011973ES

PATIENT

DRUGS (1)
  1. TAGRISSO [Suspect]
     Active Substance: OSIMERTINIB
     Indication: Non-small cell lung cancer

REACTIONS (11)
  - Death [Fatal]
  - Haematotoxicity [Unknown]
  - Malignant neoplasm progression [Unknown]
  - Keratitis [Unknown]
  - Pulmonary toxicity [Unknown]
  - Skin toxicity [Unknown]
  - Gastrointestinal toxicity [Unknown]
  - Decreased appetite [Unknown]
  - Asthenia [Unknown]
  - Diarrhoea [Unknown]
  - Hypertransaminasaemia [Unknown]
